FAERS Safety Report 25339498 (Version 1)
Quarter: 2025Q2

REPORT INFORMATION
  Report Type: Spontaneous
  Country: US (occurrence: US)
  Receive Date: 20250521
  Receipt Date: 20250521
  Transmission Date: 20250716
  Serious: No
  Sender: VIIV
  Company Number: US-ViiV Healthcare-123545

PATIENT

DRUGS (1)
  1. RETROVIR [Suspect]
     Active Substance: ZIDOVUDINE
     Indication: HIV infection

REACTIONS (1)
  - Product storage error [Unknown]
